FAERS Safety Report 12523040 (Version 1)
Quarter: 2016Q3

REPORT INFORMATION
  Report Type: Spontaneous
  Country: TR (occurrence: TR)
  Receive Date: 20160701
  Receipt Date: 20160701
  Transmission Date: 20161109
  Serious: Yes (Hospitalization)
  Sender: FDA-Public Use
  Company Number: TR-TEVA-671886ISR

PATIENT
  Age: 17 Year
  Sex: Male

DRUGS (3)
  1. ATOMOXETINE [Interacting]
     Active Substance: ATOMOXETINE
     Indication: ATTENTION DEFICIT/HYPERACTIVITY DISORDER
     Dosage: 1.2 MG/KG (60 MG/DAY)
     Route: 065
  2. ARIPIPRAZOLE. [Suspect]
     Active Substance: ARIPIPRAZOLE
     Indication: ATTENTION DEFICIT/HYPERACTIVITY DISORDER
     Dosage: 5 MG/KG DAILY;
     Route: 065
  3. ATOMOXETINE [Interacting]
     Active Substance: ATOMOXETINE
     Indication: ATTENTION DEFICIT/HYPERACTIVITY DISORDER
     Dosage: 0.5 MG/KG INCREASED TO 1.2 MG/KG
     Route: 065

REACTIONS (3)
  - Dystonia [Recovered/Resolved]
  - Drug interaction [Recovered/Resolved]
  - Irritability [Unknown]
